FAERS Safety Report 7961596-6 (Version None)
Quarter: 2011Q4

REPORT INFORMATION
  Report Type: 
  Country: None (occurrence: None)
  Receive Date: 20111202
  Receipt Date: 20111202
  Transmission Date: 20120403
  Serious: Yes (Hospitalization)
  Sender: FDA-Public Use
  Company Number: None

PATIENT
  Sex: Female
  Weight: 83.9154 kg

DRUGS (1)
  1. ISOSORBIDE DINITRATE [Suspect]
     Indication: ANGINA PECTORIS
     Dates: start: 20061201, end: 20070101

REACTIONS (2)
  - PRODUCT SUBSTITUTION ISSUE [None]
  - ANGINA PECTORIS [None]
